FAERS Safety Report 15254508 (Version 1)
Quarter: 2018Q3

REPORT INFORMATION
  Report Type: Spontaneous
  Country: DK (occurrence: DK)
  Receive Date: 20180808
  Receipt Date: 20180808
  Transmission Date: 20181010
  Serious: Yes (Hospitalization, Other)
  Sender: FDA-Public Use
  Company Number: DK-AUROBINDO-AUR-APL-2018-040348

PATIENT
  Age: 71 Year
  Sex: Female

DRUGS (10)
  1. FERRO DURETTER [Concomitant]
     Indication: MINERAL SUPPLEMENTATION
     Dosage: 200 MILLIGRAM, DAILY
     Route: 048
     Dates: start: 20171129
  2. QUETIAPIN ACTAVIS [Suspect]
     Active Substance: QUETIAPINE
     Dosage: 200 MILLIGRAM, DAILY, 1  TABLET A DAY
     Route: 048
     Dates: start: 20180701
  3. BETOLVEX                           /00056201/ [Concomitant]
     Active Substance: CYANOCOBALAMIN
     Indication: VITAMIN B12 DEFICIENCY
     Dosage: 1 MILLIGRAM, DAILY
     Route: 048
     Dates: start: 20180402, end: 20180618
  4. SERTRALINE [Suspect]
     Active Substance: SERTRALINE HYDROCHLORIDE
     Indication: DEPRESSION
     Dosage: 50 MILLIGRAM, DAILY
     Route: 048
     Dates: start: 20111106, end: 20180618
  5. LANTUS [Concomitant]
     Active Substance: INSULIN GLARGINE
     Indication: DIABETES MELLITUS
     Dosage: 1 DOSAGE FORM, DAILY
     Route: 058
     Dates: start: 20160824
  6. RIVOTRIL [Suspect]
     Active Substance: CLONAZEPAM
     Indication: ANXIETY
     Dosage: 1 MILLIGRAM, DAILY,
     Route: 048
     Dates: start: 20111106
  7. RIVOTRIL [Suspect]
     Active Substance: CLONAZEPAM
     Dosage: 2 MILLIGRAM, TWO TIMES A DAY
     Route: 065
     Dates: start: 20111106, end: 20180404
  8. UNIKALK OSTEO [Concomitant]
     Indication: VITAMIN SUPPLEMENTATION
     Dosage: 2 DOSAGE FORM, DAILY
     Route: 048
     Dates: start: 20111106, end: 20180618
  9. QUETIAPIN ACTAVIS [Suspect]
     Active Substance: QUETIAPINE
     Indication: SCHIZOPHRENIA
     Dosage: 300 MILLIGRAM, DAILY
     Route: 048
     Dates: start: 20180615
  10. MELATONIN [Concomitant]
     Active Substance: MELATONIN
     Indication: INSOMNIA
     Dosage: 3 MILLIGRAM, DAILY
     Route: 048
     Dates: start: 20140812, end: 20180618

REACTIONS (3)
  - Overdose [Recovered/Resolved]
  - Disability [Recovering/Resolving]
  - Fall [Recovering/Resolving]

NARRATIVE: CASE EVENT DATE: 2018
